FAERS Safety Report 6378003-X (Version None)
Quarter: 2009Q3

REPORT INFORMATION
  Report Type: 
  Country: None (occurrence: None)
  Receive Date: 20090925
  Receipt Date: 20090922
  Transmission Date: 20100115
  Serious: Yes (Death)
  Sender: FDA-Public Use
  Company Number: PHEH2009US11575

PATIENT

DRUGS (1)
  1. EXJADE [Suspect]
     Dosage: 1500 MG DAILY
     Dates: start: 20090603, end: 20090826

REACTIONS (1)
  - DEATH [None]
